FAERS Safety Report 4790224-6 (Version None)
Quarter: 2005Q4

REPORT INFORMATION
  Report Type: 
  Country: None (occurrence: None)
  Receive Date: 20051006
  Receipt Date: 20050926
  Transmission Date: 20060501
  Serious: Yes (Hospitalization)
  Sender: FDA-Public Use
  Company Number: US-BRISTOL-MYERS SQUIBB COMPANY-13121231

PATIENT
  Age: 65 Year
  Sex: Female
  Weight: 65 kg

DRUGS (6)
  1. CARBOPLATIN [Suspect]
     Indication: OVARIAN CANCER
     Dosage: DOSE:  AUC5 ON CYCLE DAY 1
     Route: 042
     Dates: start: 20050714, end: 20050714
  2. GEMCITABINE HCL [Suspect]
     Indication: OVARIAN CANCER
     Route: 042
     Dates: start: 20050714, end: 20050714
  3. QUESTRAN [Concomitant]
     Dates: start: 20050630
  4. DIPHENOXYLATE HCL + ATROPINE SULFATE [Concomitant]
     Route: 048
     Dates: start: 20050630
  5. DESITIN [Concomitant]
     Dates: start: 20050630
  6. COUMADIN [Concomitant]
     Dates: start: 20050718

REACTIONS (4)
  - CELLULITIS [None]
  - DEEP VEIN THROMBOSIS [None]
  - HYDRONEPHROSIS [None]
  - NEPHROLITHIASIS [None]
